FAERS Safety Report 5021728-9 (Version None)
Quarter: 2006Q2

REPORT INFORMATION
  Report Type: 
  Country: None (occurrence: None)
  Receive Date: 20060605
  Receipt Date: 20060530
  Transmission Date: 20061013
  Serious: Yes (Other)
  Sender: FDA-Public Use
  Company Number: 200612022BCC

PATIENT
  Age: 64 Year
  Sex: Male
  Weight: 75.7507 kg

DRUGS (9)
  1. GENUINE BAYER TABLETS (ACETYLSALICYLIC ACID) [Suspect]
     Indication: ARTHRALGIA
     Dosage: SEE IMAGE
     Route: 048
     Dates: start: 19760101
  2. GENUINE BAYER TABLETS (ACETYLSALICYLIC ACID) [Suspect]
     Indication: CARDIOVASCULAR DISORDER
     Dosage: SEE IMAGE
     Route: 048
     Dates: start: 19760101
  3. GENUINE BAYER TABLETS (ACETYLSALICYLIC ACID) [Suspect]
     Indication: ARTHRALGIA
     Dosage: SEE IMAGE
     Route: 048
     Dates: start: 19900101
  4. GENUINE BAYER TABLETS (ACETYLSALICYLIC ACID) [Suspect]
     Indication: CARDIOVASCULAR DISORDER
     Dosage: SEE IMAGE
     Route: 048
     Dates: start: 19900101
  5. PROPACET 100 [Concomitant]
  6. CRESTOR [Concomitant]
  7. NEXIUM [Concomitant]
  8. KLONOPIN [Concomitant]
  9. RELAFEN [Concomitant]

REACTIONS (1)
  - KNEE ARTHROPLASTY [None]
